FAERS Safety Report 19836873 (Version 1)
Quarter: 2021Q3

REPORT INFORMATION
  Report Type: Spontaneous
  Country: CZ (occurrence: CZ)
  Receive Date: 20210916
  Receipt Date: 20210916
  Transmission Date: 20211014
  Serious: Yes (Hospitalization, Other)
  Sender: FDA-Public Use
  Company Number: CZ-AMGEN-CZESP2021140220

PATIENT
  Age: 62 Year
  Sex: Female

DRUGS (16)
  1. PROLIA [Suspect]
     Active Substance: DENOSUMAB
     Indication: OSTEOPOROSIS
     Dosage: UNK
     Route: 065
     Dates: start: 2012, end: 2016
  2. PANGROL [PANCREATIN] [Concomitant]
  3. LYRICA [Concomitant]
     Active Substance: PREGABALIN
  4. PARALEN [PARACETAMOL] [Concomitant]
  5. OMEPRAZOLE. [Concomitant]
     Active Substance: OMEPRAZOLE
  6. VASOCARDIN [Concomitant]
     Active Substance: METOPROLOL
  7. KALNORMIN [Concomitant]
     Active Substance: POTASSIUM CHLORIDE
  8. MATRIFEN [Concomitant]
     Active Substance: FENTANYL
  9. LOW MOLECULAR WEIGHT HEPARIN [Concomitant]
     Active Substance: UNSPECIFIED INGREDIENT
     Dosage: UNK
  10. NOVALGIN (METAMIZOLE SODIUM) [Concomitant]
     Active Substance: METAMIZOLE SODIUM
  11. MILURIT [Concomitant]
     Active Substance: ALLOPURINOL
  12. MICARDIS [Concomitant]
     Active Substance: TELMISARTAN
  13. PROLIA [Suspect]
     Active Substance: DENOSUMAB
     Dosage: UNK
     Route: 065
     Dates: start: 201904, end: 202003
  14. VIGANTOL [COLECALCIFEROL] [Concomitant]
     Active Substance: CHOLECALCIFEROL
     Dosage: 10 DROPS PER, QWK
  15. LACTULOSA [Concomitant]
     Active Substance: LACTULOSE
  16. CALCICHEW [Concomitant]
     Active Substance: CALCIUM CARBONATE
     Dosage: 500/400, BID

REACTIONS (8)
  - Thoracic vertebral fracture [Unknown]
  - Pneumonia [Unknown]
  - Femur fracture [Recovered/Resolved]
  - Rebound effect [Unknown]
  - SARS-CoV-2 test positive [Unknown]
  - Treatment noncompliance [Unknown]
  - Lumbar vertebral fracture [Unknown]
  - Chronic obstructive pulmonary disease [Unknown]

NARRATIVE: CASE EVENT DATE: 201201
